FAERS Safety Report 15466723 (Version 1)
Quarter: 2018Q4

REPORT INFORMATION
  Report Type: Spontaneous
  Country: IT (occurrence: IT)
  Receive Date: 20181005
  Receipt Date: 20181005
  Transmission Date: 20190204
  Serious: Yes (Hospitalization)
  Sender: FDA-Public Use
  Company Number: IT-TEVA-2018-IT-960983

PATIENT
  Age: 53 Year
  Sex: Male

DRUGS (1)
  1. CISPLATIN. [Suspect]
     Active Substance: CISPLATIN
     Dosage: 100 MILLIGRAM DAILY;
     Route: 042
     Dates: start: 20080526, end: 20080526

REACTIONS (1)
  - Parathyroid gland enlargement [Recovered/Resolved]

NARRATIVE: CASE EVENT DATE: 20080526
